FAERS Safety Report 4546056-7 (Version None)
Quarter: 2005Q1

REPORT INFORMATION
  Report Type: 
  Country: None (occurrence: None)
  Receive Date: 20050103
  Receipt Date: 20041222
  Transmission Date: 20050727
  Serious: No
  Sender: FDA-Public Use
  Company Number: 04H-163-0284685-00

PATIENT
  Age: 56 Year
  Sex: Female

DRUGS (2)
  1. PROMETHAZINE HYDROCHLORIDE INJECTION (PROMETHAZINE HYDROCHLORIDE) (PRO [Suspect]
     Dosage: 12 MG, ONCE, INTRAVENOUS
     Route: 042
     Dates: start: 20041103, end: 20041103
  2. IOHEXOL [Suspect]
     Indication: SCAN WITH CONTRAST
     Dosage: 70 ML, ONCE, INTRAVENOUS
     Route: 042
     Dates: start: 20041103, end: 20041103

REACTIONS (10)
  - ARM AMPUTATION [None]
  - CONTRAST MEDIA REACTION [None]
  - FINGER AMPUTATION [None]
  - INFUSION RELATED REACTION [None]
  - INFUSION SITE BRUISING [None]
  - INFUSION SITE BURNING [None]
  - INFUSION SITE PAIN [None]
  - NECROSIS [None]
  - PULSE ABSENT [None]
  - SKIN DISCOLOURATION [None]
